FAERS Safety Report 10919569 (Version 2)
Quarter: 2015Q2

REPORT INFORMATION
  Report Type: Spontaneous
  Country: US (occurrence: US)
  Receive Date: 20150317
  Receipt Date: 20150526
  Transmission Date: 20150821
  Serious: No
  Sender: FDA-Public Use
  Company Number: US-JNJFOC-20130113732

PATIENT
  Sex: Female

DRUGS (3)
  1. ORTHO NOVUM 1/35 [Interacting]
     Active Substance: ETHINYL ESTRADIOL\NORETHINDRONE
     Indication: PRODUCT USED FOR UNKNOWN INDICATION
     Dosage: SESSION 1 AND 2 ON DAYS 1 TO 21
     Route: 065
  2. RITONAVIR. [Suspect]
     Active Substance: RITONAVIR
     Indication: PRODUCT USED FOR UNKNOWN INDICATION
     Dosage: ON DAYS 1 TO 14
     Route: 065
  3. DARUNAVIR [Suspect]
     Active Substance: DARUNAVIR
     Indication: PRODUCT USED FOR UNKNOWN INDICATION
     Dosage: SESSION 2 ON DAYS 1 TO 14
     Route: 065

REACTIONS (2)
  - Skin reaction [Unknown]
  - Drug interaction [Unknown]
